FAERS Safety Report 7091647-5 (Version None)
Quarter: 2010Q4

REPORT INFORMATION
  Report Type: 
  Country: None (occurrence: None)
  Receive Date: 20101109
  Receipt Date: 20090803
  Transmission Date: 20110411
  Serious: No
  Sender: FDA-Public Use
  Company Number: US-KINGPHARMUSA00001-K200900921

PATIENT
  Sex: Female
  Weight: 40.816 kg

DRUGS (2)
  1. FLECTOR [Suspect]
     Indication: BACK PAIN
     Dosage: 1/2-1 PATCH, QD
     Route: 061
     Dates: start: 20090730, end: 20090801
  2. FLECTOR [Suspect]
     Indication: INFLAMMATION

REACTIONS (3)
  - DIARRHOEA [None]
  - NAUSEA [None]
  - VOMITING [None]
